FAERS Safety Report 7180653-8 (Version None)
Quarter: 2010Q4

REPORT INFORMATION
  Report Type: 
  Country: None (occurrence: None)
  Receive Date: 20101221
  Receipt Date: 20101207
  Transmission Date: 20110411
  Serious: Yes (Death)
  Sender: FDA-Public Use
  Company Number: NL-GENENTECH-311074

PATIENT
  Sex: Male
  Weight: 96 kg

DRUGS (5)
  1. RITUXIMAB [Suspect]
     Indication: DIFFUSE LARGE B-CELL LYMPHOMA
     Dosage: LAST DOSE PRIOR TO SAE: 23 NOVEMBER 2010
     Route: 042
     Dates: start: 20101123
  2. CYCLOPHOSPHAMIDE [Suspect]
     Indication: DIFFUSE LARGE B-CELL LYMPHOMA
     Dosage: LAST DOSE PRIOR TO SAE: 23 NOVEMBER 2010
     Route: 042
     Dates: start: 20101123
  3. DOXORUBICIN HCL [Suspect]
     Indication: DIFFUSE LARGE B-CELL LYMPHOMA
     Dosage: LAST DOSE PRIOR TO SAE: 23 NOVEMBER 2010
     Route: 042
     Dates: start: 20101123
  4. VINCRISTINE [Suspect]
     Indication: DIFFUSE LARGE B-CELL LYMPHOMA
     Dosage: LAST DOSE PRIOR TO SAE: 23 NOVEMBER 2010
     Route: 042
     Dates: start: 20101123
  5. PREDNISONE [Suspect]
     Indication: DIFFUSE LARGE B-CELL LYMPHOMA
     Dosage: LAST DOSE PRIOR TO SAE: 27 NOVEMBER 2010
     Route: 048
     Dates: start: 20101123

REACTIONS (2)
  - DEATH [None]
  - MYOCARDIAL INFARCTION [None]
